FAERS Safety Report 8923337 (Version 1)
Quarter: 2012Q4

REPORT INFORMATION
  Report Type: 
  Country: ZA (occurrence: ZA)
  Receive Date: 20121123
  Receipt Date: 20121123
  Transmission Date: 20130627
  Serious: Yes (Other)
  Sender: FDA-Public Use
  Company Number: ZA-JNJFOC-20121109796

PATIENT
  Age: 59 Year
  Sex: Female

DRUGS (4)
  1. REVELLEX [Suspect]
     Indication: CROHN^S DISEASE
     Route: 042
  2. REVELLEX [Suspect]
     Indication: CROHN^S DISEASE
     Route: 042
     Dates: start: 20121112
  3. DESELEX [Concomitant]
     Indication: PREMEDICATION
     Route: 065
  4. SOLU-CORTEF [Concomitant]
     Indication: PREMEDICATION
     Route: 050

REACTIONS (5)
  - Palpitations [Recovered/Resolved]
  - Dyspnoea [Recovered/Resolved]
  - Infusion related reaction [Recovered/Resolved]
  - Nausea [Recovered/Resolved]
  - Anxiety [Recovered/Resolved]
